FAERS Safety Report 10283349 (Version 1)
Quarter: 2014Q3

REPORT INFORMATION
  Report Type: Spontaneous
  Country: US (occurrence: US)
  Receive Date: 20140708
  Receipt Date: 20140708
  Transmission Date: 20150326
  Serious: Yes (Hospitalization, Other)
  Sender: FDA-Public Use
  Company Number: US-AMGEN-USASP2014050491

PATIENT
  Age: 55 Year
  Sex: Female

DRUGS (1)
  1. ENBREL [Suspect]
     Active Substance: ETANERCEPT
     Indication: ANKYLOSING SPONDYLITIS
     Dosage: 50 MG, QWK
     Route: 065
     Dates: start: 201111

REACTIONS (9)
  - Urinary retention [Unknown]
  - Urinary bladder rupture [Recovered/Resolved]
  - Vocal cord cyst [Recovered/Resolved]
  - Speech disorder [Recovered/Resolved]
  - Abdominal pain [Unknown]
  - Injection site pain [Not Recovered/Not Resolved]
  - Abdominal adhesions [Unknown]
  - Pelvic adhesions [Unknown]
  - Vulvovaginal adhesion [Unknown]

NARRATIVE: CASE EVENT DATE: 2013
